FAERS Safety Report 6521668-X (Version None)
Quarter: 2009Q4

REPORT INFORMATION
  Report Type: 
  Country: None (occurrence: None)
  Receive Date: 20091230
  Receipt Date: 20091221
  Transmission Date: 20100525
  Serious: Yes (Hospitalization, Other)
  Sender: FDA-Public Use
  Company Number: PHHY2009CA19626

PATIENT
  Sex: Male

DRUGS (1)
  1. SANDOSTATIN LAR [Suspect]
     Indication: ACROMEGALY
     Dosage: 30 MG EVERY 3 WEEKS
     Route: 030
     Dates: start: 19990901

REACTIONS (8)
  - BLOOD PRESSURE INCREASED [None]
  - DIALYSIS [None]
  - FALL [None]
  - HIP FRACTURE [None]
  - INJECTION SITE PAIN [None]
  - PELVIC FRACTURE [None]
  - UPPER LIMB FRACTURE [None]
  - WALKING AID USER [None]
